FAERS Safety Report 19132082 (Version 1)
Quarter: 2021Q2

REPORT INFORMATION
  Report Type: Spontaneous
  Country: CZ (occurrence: CZ)
  Receive Date: 20210414
  Receipt Date: 20210414
  Transmission Date: 20210717
  Serious: Yes (Hospitalization)
  Sender: FDA-Public Use
  Company Number: CZ-AUROBINDO-AUR-APL-2021-015010

PATIENT
  Sex: Female
  Weight: 52 kg

DRUGS (6)
  1. REXULTI [Suspect]
     Active Substance: BREXPIPRAZOLE
     Dosage: 2 MILLIGRAM ON DAY 03
     Route: 065
  2. REXULTI [Suspect]
     Active Substance: BREXPIPRAZOLE
     Dosage: 4 MILLIGRAM ON DAY 05
     Route: 065
  3. REXULTI [Suspect]
     Active Substance: BREXPIPRAZOLE
     Indication: SCHIZOPHRENIA
     Dosage: 3 MILLIGRAM ON DAY 04
     Route: 065
  4. OLANZAPINE. [Suspect]
     Active Substance: OLANZAPINE
     Indication: SCHIZOPHRENIA
     Dosage: UNK
     Route: 065
  5. REXULTI [Suspect]
     Active Substance: BREXPIPRAZOLE
     Dosage: 1 MILLIGRAM ON DAY 01 AND 02
     Route: 065
  6. OLANZAPINE. [Suspect]
     Active Substance: OLANZAPINE
     Indication: SEDATION

REACTIONS (4)
  - Drug titration error [Unknown]
  - Extrapyramidal disorder [Recovered/Resolved]
  - Galactorrhoea [Unknown]
  - Psychotic disorder [Unknown]
